FAERS Safety Report 9729006 (Version 1)
Quarter: 2013Q4

REPORT INFORMATION
  Report Type: Spontaneous
  Country: US (occurrence: US)
  Receive Date: 20131204
  Receipt Date: 20131204
  Transmission Date: 20140711
  Serious: No
  Sender: FDA-Public Use
  Company Number: US-ENDO PHARMACEUTICALS INC.-OXAT20120008

PATIENT
  Age: 55 Year
  Sex: Female
  Weight: 72.19 kg

DRUGS (1)
  1. OXYCODONE/ACETAMINOPHEN TABLETS 5MG/325MG [Suspect]
     Indication: PRODUCT USED FOR UNKNOWN INDICATION
     Dosage: 5/325 MG
     Route: 048
     Dates: start: 201209, end: 201209

REACTIONS (3)
  - Sensation of heaviness [Recovered/Resolved]
  - Pain in extremity [Recovered/Resolved]
  - Dyspepsia [Recovered/Resolved]
